FAERS Safety Report 8622590-5 (Version None)
Quarter: 2012Q3

REPORT INFORMATION
  Report Type: 
  Country: None (occurrence: None)
  Receive Date: 20120827
  Receipt Date: 20120801
  Transmission Date: 20120928
  Serious: No
  Sender: FDA-Public Use
  Company Number: US-009507513-1208USA001270

PATIENT

DRUGS (1)
  1. AZASITE [Suspect]
     Dosage: UNK
     Route: 047

REACTIONS (2)
  - NO ADVERSE EVENT [None]
  - EXPIRED DRUG ADMINISTERED [None]
